FAERS Safety Report 8257906-5 (Version None)
Quarter: 2012Q2

REPORT INFORMATION
  Report Type: 
  Country: None (occurrence: None)
  Receive Date: 20120404
  Receipt Date: 20120327
  Transmission Date: 20120825
  Serious: Yes (Hospitalization)
  Sender: FDA-Public Use
  Company Number: US-PFIZER INC-2012058743

PATIENT
  Sex: Female
  Weight: 65.76 kg

DRUGS (6)
  1. ZOLOFT [Concomitant]
     Indication: DEPRESSION
     Dosage: 100 MG, 2X/DAY
     Dates: start: 20080701
  2. XANAX [Concomitant]
     Indication: SLEEP DISORDER
  3. GEODON [Suspect]
     Indication: PSYCHOTIC DISORDER
     Dosage: 60 MG, 2X/DAY
     Route: 048
     Dates: start: 20010101
  4. GEODON [Suspect]
     Indication: DELUSION
     Dosage: 80 MG, 2X/DAY
     Route: 048
     Dates: start: 20010101
  5. XANAX [Concomitant]
     Indication: ANXIETY
     Dosage: 2 MG, AT BEDTIME
     Dates: start: 20080701
  6. RITALIN [Concomitant]
     Indication: ATTENTION DEFICIT/HYPERACTIVITY DISORDER
     Dosage: 20 MG, 2X/DAY
     Dates: start: 20080201

REACTIONS (6)
  - SOMNOLENCE [None]
  - DRUG INTOLERANCE [None]
  - MALAISE [None]
  - SOCIAL AVOIDANT BEHAVIOUR [None]
  - ACCIDENT [None]
  - HYPERSOMNIA [None]
